FAERS Safety Report 5958594-0 (Version None)
Quarter: 2008Q4

REPORT INFORMATION
  Report Type: 
  Country: None (occurrence: None)
  Receive Date: 20081119
  Receipt Date: 20081111
  Transmission Date: 20090506
  Serious: Yes (Other)
  Sender: FDA-Public Use
  Company Number: JP-PFIZER INC-2008091350

PATIENT
  Age: 40 Year
  Sex: Male

DRUGS (2)
  1. SALAZOPYRIN [Suspect]
     Indication: COLITIS ULCERATIVE
     Dosage: DAILY DOSE:4.5GRAM
     Route: 048
     Dates: start: 20080913
  2. IMURAN [Suspect]
     Route: 048

REACTIONS (1)
  - LIVER DISORDER [None]
